FAERS Safety Report 16635552 (Version 3)
Quarter: 2020Q4

REPORT INFORMATION
  Report Type: Spontaneous
  Country: AU (occurrence: AU)
  Receive Date: 20190726
  Receipt Date: 20201002
  Transmission Date: 20210113
  Serious: Yes (Hospitalization, Other)
  Sender: FDA-Public Use
  Company Number: AU-009507513-1907AUS012365

PATIENT
  Sex: Female

DRUGS (3)
  1. IMPLANON [Suspect]
     Active Substance: ETONOGESTREL
     Indication: ENDOMETRIOSIS
     Dosage: 1 IMPLANT
     Route: 059
  2. MIRENA [Suspect]
     Active Substance: LEVONORGESTREL
     Indication: ENDOMETRIOSIS
     Dosage: UNK
  3. ZOLADEX [Suspect]
     Active Substance: GOSERELIN ACETATE
     Indication: ARTIFICIAL MENOPAUSE
     Dosage: UNK
     Route: 048
     Dates: start: 201906

REACTIONS (9)
  - Bone density decreased [Not Recovered/Not Resolved]
  - Adverse event [Not Recovered/Not Resolved]
  - Gastrointestinal disorder [Not Recovered/Not Resolved]
  - Menorrhagia [Recovered/Resolved]
  - Product use in unapproved indication [Unknown]
  - Artificial menopause [Unknown]
  - Pain [Not Recovered/Not Resolved]
  - Fatigue [Not Recovered/Not Resolved]
  - Blood loss anaemia [Unknown]

NARRATIVE: CASE EVENT DATE: 201906
